FAERS Safety Report 9835065 (Version 1)
Quarter: 2014Q1

REPORT INFORMATION
  Report Type: Spontaneous
  Country: US (occurrence: US)
  Receive Date: 20140122
  Receipt Date: 20140122
  Transmission Date: 20141002
  Serious: Yes (Life-Threatening, Hospitalization)
  Sender: FDA-Public Use
  Company Number: US-GE HEALTHCARE MEDICAL DIAGNOSTICS-OMPQ-PR-1401S-0020

PATIENT
  Age: 46 Year
  Sex: Female

DRUGS (1)
  1. OMNIPAQUE [Suspect]
     Indication: ACCIDENTAL EXPOSURE TO PRODUCT
     Dosage: DOSE NOT REPORTED
     Route: 050
     Dates: start: 20131210, end: 20131210

REACTIONS (2)
  - Occupational exposure to product [None]
  - Anaphylactic reaction [Recovering/Resolving]
